FAERS Safety Report 4711016-X (Version None)
Quarter: 2005Q3

REPORT INFORMATION
  Report Type: 
  Country: None (occurrence: None)
  Receive Date: 20050711
  Receipt Date: 20050422
  Transmission Date: 20060218
  Serious: Yes (Hospitalization, Other)
  Sender: FDA-Public Use
  Company Number: PHBS2005JP05991

PATIENT
  Age: 12 Year
  Sex: Male
  Weight: 22 kg

DRUGS (9)
  1. PENTASA [Concomitant]
     Dosage: 12 DF/D
     Route: 048
     Dates: start: 20050415
  2. MIYA-BM [Concomitant]
     Dosage: 3 DF/D
     Route: 048
     Dates: start: 20050415
  3. INTRALIPOS 10 [Concomitant]
     Dosage: 240 ML/D
     Route: 042
     Dates: start: 20050415, end: 20050420
  4. PLASMANATE [Concomitant]
     Dosage: 240 ML/DL
     Route: 042
     Dates: start: 20050416
  5. MODACIN [Concomitant]
     Dosage: 2 G/DAY
     Route: 042
     Dates: start: 20050415
  6. SANDIMMUNE [Suspect]
     Indication: COLITIS ULCERATIVE
     Dosage: 60 MG/DAY
     Dates: start: 20050415, end: 20050420
  7. PREDNISOLONE [Concomitant]
     Dosage: 50-40 MG/DAY
     Route: 042
     Dates: start: 20050415
  8. GASTER [Concomitant]
     Dosage: 30 MG/DAY
     Route: 042
     Dates: start: 20050415
  9. FOY [Concomitant]
     Dosage: 500 MG/D
     Route: 042
     Dates: start: 20050417

REACTIONS (7)
  - ARTIFICIAL ANUS [None]
  - COLECTOMY TOTAL [None]
  - DEPRESSED LEVEL OF CONSCIOUSNESS [None]
  - GAZE PALSY [None]
  - GRAND MAL CONVULSION [None]
  - TOXIC INDUCED ENCEPHALOPATHY [None]
  - VISUAL DISTURBANCE [None]
